FAERS Safety Report 7089235-X (Version None)
Quarter: 2010Q4

REPORT INFORMATION
  Report Type: 
  Country: None (occurrence: None)
  Receive Date: 20101108
  Receipt Date: 20101026
  Transmission Date: 20110411
  Serious: Yes (Other)
  Sender: FDA-Public Use
  Company Number: US-MERCK-0704USA01184

PATIENT
  Age: 68 Year
  Sex: Female

DRUGS (2)
  1. FOSAMAX [Suspect]
     Indication: OSTEOPOROSIS
     Route: 048
     Dates: start: 19990601, end: 20050615
  2. FOSAMAX [Suspect]
     Route: 048
     Dates: start: 20010401

REACTIONS (28)
  - ADVERSE DRUG REACTION [None]
  - ANXIETY [None]
  - BONE DISORDER [None]
  - BRONCHITIS [None]
  - COUGH [None]
  - DENTAL CARIES [None]
  - DEPRESSION [None]
  - DRY MOUTH [None]
  - ENTHESOPATHY [None]
  - FIBROSIS [None]
  - GINGIVAL SWELLING [None]
  - HERPES ZOSTER [None]
  - HYPERSENSITIVITY [None]
  - IMPAIRED HEALING [None]
  - JAW FRACTURE [None]
  - LIP SWELLING [None]
  - MUSCULOSKELETAL PAIN [None]
  - NASOPHARYNGITIS [None]
  - NAUSEA [None]
  - OSTEOMYELITIS [None]
  - OSTEONECROSIS OF JAW [None]
  - OSTEORADIONECROSIS [None]
  - OVARIAN CYST [None]
  - PALPITATIONS [None]
  - PYREXIA [None]
  - RASH [None]
  - RHINORRHOEA [None]
  - UPPER RESPIRATORY TRACT INFECTION [None]
